FAERS Safety Report 17924691 (Version 1)
Quarter: 2020Q2

REPORT INFORMATION
  Report Type: Other
  Country: US (occurrence: US)
  Receive Date: 20200622
  Receipt Date: 20200622
  Transmission Date: 20200714
  Serious: No
  Sender: FDA-Public Use
  Company Number: US-ACORDA-ACO_164675_2020

PATIENT
  Sex: Male

DRUGS (3)
  1. INBRIJA [Suspect]
     Active Substance: LEVODOPA
     Indication: ON AND OFF PHENOMENON
  2. INBRIJA [Suspect]
     Active Substance: LEVODOPA
     Indication: PARKINSON^S DISEASE
     Dosage: 84 MILLIGRAM, PRN. NOT TO EXCEED 5 DOSES A DAY
     Dates: start: 20200407
  3. CARBIDOPA/LEVODOPA [Concomitant]
     Active Substance: CARBIDOPA\LEVODOPA
     Indication: PRODUCT USED FOR UNKNOWN INDICATION
     Dosage: 25/100MG: 2 PILLS @ 6AM, 10 AM, 2 PM AND 6PM AND EXTENDED RELEASE 25/100 MG: 1 PILL AT BEDTIME
     Route: 065

REACTIONS (5)
  - Cough [Unknown]
  - Throat irritation [Unknown]
  - Drug effect less than expected [Unknown]
  - Somnolence [Unknown]
  - Product dose omission [Unknown]
